FAERS Safety Report 6226367-X (Version None)
Quarter: 2009Q2

REPORT INFORMATION
  Report Type: 
  Country: None (occurrence: None)
  Receive Date: 20090612
  Receipt Date: 20090602
  Transmission Date: 20091009
  Serious: Yes (Other)
  Sender: FDA-Public Use
  Company Number: US-JNJFOC-20090200546

PATIENT
  Sex: Female
  Weight: 68.95 kg

DRUGS (9)
  1. REMICADE [Suspect]
     Route: 042
  2. REMICADE [Suspect]
     Route: 042
  3. REMICADE [Suspect]
     Indication: COLITIS ULCERATIVE
     Dosage: ALSO REPORTED AS ^5 YEARS PREVIOUSLY?^
     Route: 042
  4. LIALDA [Concomitant]
     Indication: COLITIS ULCERATIVE
  5. OMEPRAZOLE [Concomitant]
     Indication: GASTROOESOPHAGEAL REFLUX DISEASE
  6. MEVACOR [Concomitant]
     Indication: BLOOD CHOLESTEROL INCREASED
  7. SOLU-MEDROL [Concomitant]
     Indication: PREMEDICATION
  8. LORATADINE [Concomitant]
     Indication: PREMEDICATION
  9. VITAMIN C + E [Concomitant]

REACTIONS (13)
  - ARTHRALGIA [None]
  - BURNING SENSATION [None]
  - CHEST DISCOMFORT [None]
  - COUGH [None]
  - DRUG INEFFECTIVE [None]
  - FLUSHING [None]
  - INFUSION RELATED REACTION [None]
  - JOINT STIFFNESS [None]
  - LUPUS-LIKE SYNDROME [None]
  - MYALGIA [None]
  - OROPHARYNGEAL PAIN [None]
  - PRURITUS [None]
  - RASH [None]
